FAERS Safety Report 11610846 (Version 1)
Quarter: 2015Q4

REPORT INFORMATION
  Report Type: Spontaneous
  Country: US (occurrence: None)
  Receive Date: 20151007
  Receipt Date: 20151007
  Transmission Date: 20160304
  Serious: Yes (Other)
  Sender: FDA-Public Use
  Company Number: None

PATIENT
  Age: 61 Year
  Sex: Male
  Weight: 69.85 kg

DRUGS (1)
  1. HARVONI [Suspect]
     Active Substance: LEDIPASVIR\SOFOSBUVIR
     Indication: HEPATITIS C
     Route: 048
     Dates: start: 20150914

REACTIONS (5)
  - Rash generalised [None]
  - Skin burning sensation [None]
  - Pruritus [None]
  - Insomnia [None]
  - Urticaria [None]

NARRATIVE: CASE EVENT DATE: 20151005
